FAERS Safety Report 10601559 (Version 1)
Quarter: 2014Q4

REPORT INFORMATION
  Report Type: Spontaneous
  Country: US (occurrence: None)
  Receive Date: 20141121
  Receipt Date: 20141121
  Transmission Date: 20150529
  Serious: Yes (Hospitalization)
  Sender: FDA-Public Use
  Company Number: None

PATIENT
  Age: 61 Year
  Sex: Male
  Weight: 83.1 kg

DRUGS (2)
  1. ABIRATERONE ACETATE [Suspect]
     Active Substance: ABIRATERONE ACETATE
     Dosage: TOTAL DOSE ADMINISTERED TO BE CONFIRMED WHEN PATIENT RETURNS ORAL DRUG DIARY
  2. PREDNISONE. [Suspect]
     Active Substance: PREDNISONE
     Dosage: TOTAL DOSE ADMINISTERED TO BE CONFIRMED WHEN PATIENT RETURNS ORAL DRUG DAIRY

REACTIONS (3)
  - Constipation [None]
  - Large intestinal obstruction [None]
  - Prostate cancer metastatic [None]

NARRATIVE: CASE EVENT DATE: 20141108
